FAERS Safety Report 5109711-6 (Version None)
Quarter: 2006Q3

REPORT INFORMATION
  Report Type: 
  Country: None (occurrence: None)
  Receive Date: 20060918
  Receipt Date: 20060907
  Transmission Date: 20061208
  Serious: Yes (Other)
  Sender: FDA-Public Use
  Company Number: 2006BL005405

PATIENT
  Age: 29 Year
  Sex: Female

DRUGS (3)
  1. MINIMS  PREDNISOLONE SODIUM PHOSPHATE [Suspect]
     Indication: HERPES GESTATIONIS
     Dosage: ONCE A DAY;
  2. ACTRAPID HUMAN [Concomitant]
  3. ERYTHROMYCIN [Concomitant]

REACTIONS (5)
  - DRUG EXPOSURE DURING PREGNANCY [None]
  - GESTATIONAL DIABETES [None]
  - HERPES GESTATIONIS [None]
  - PREMATURE RUPTURE OF MEMBRANES [None]
  - TOOTH EXTRACTION [None]
